FAERS Safety Report 4992352-9 (Version None)
Quarter: 2006Q1

REPORT INFORMATION
  Report Type: 
  Country: None (occurrence: None)
  Receive Date: 20060315
  Receipt Date: 20050429
  Transmission Date: 20060701
  Serious: Yes (Hospitalization)
  Sender: FDA-Public Use
  Company Number: USA050597215

PATIENT
  Age: 84 Year
  Sex: Female

DRUGS (8)
  1. GEMZAR [Suspect]
     Indication: NON-SMALL CELL LUNG CANCER METASTATIC
     Dosage: 1566 MG
     Dates: start: 20050119, end: 20050420
  2. DECADRON [Concomitant]
  3. ANZEMET [Concomitant]
  4. NEULASTA [Concomitant]
  5. ALTACE (RAMIPRIL DURA) [Concomitant]
  6. OXYCONTIN [Concomitant]
  7. PERCOCET [Concomitant]
  8. BACTRIM [Concomitant]

REACTIONS (2)
  - ASTHENIA [None]
  - RENAL FAILURE [None]
